FAERS Safety Report 6083683-2 (Version None)
Quarter: 2009Q1

REPORT INFORMATION
  Report Type: 
  Country: None (occurrence: None)
  Receive Date: 20090217
  Receipt Date: 20090204
  Transmission Date: 20090719
  Serious: Yes (Other)
  Sender: FDA-Public Use
  Company Number: 2009-190152-NL

PATIENT
  Sex: Female

DRUGS (1)
  1. ORGALUTRAN [Suspect]
     Indication: INFERTILITY
     Dosage: 250 UG DAILY, PREFILLED SYRINGE
     Dates: start: 20090117, end: 20090117

REACTIONS (5)
  - CYANOSIS [None]
  - DEHYDRATION [None]
  - DIARRHOEA [None]
  - LOSS OF CONSCIOUSNESS [None]
  - VOMITING [None]
